FAERS Safety Report 10777621 (Version 1)
Quarter: 2015Q1

REPORT INFORMATION
  Report Type: Report from Study
  Country: BR (occurrence: BR)
  Receive Date: 20150209
  Receipt Date: 20150209
  Transmission Date: 20150721
  Serious: Yes (Death, Hospitalization, Other)
  Sender: FDA-Public Use
  Company Number: BR-ABBVIE-09P-020-0601800-00

PATIENT
  Age: 68 Year
  Sex: Female
  Weight: 62 kg

DRUGS (6)
  1. HUMIRA [Suspect]
     Active Substance: ADALIMUMAB
     Route: 058
     Dates: end: 2010
  2. EXELON [Concomitant]
     Active Substance: RIVASTIGMINE TARTRATE
     Indication: PARKINSON^S DISEASE
     Route: 048
     Dates: start: 200909
  3. OMEPRAZOLE. [Concomitant]
     Active Substance: OMEPRAZOLE
     Indication: GASTRIC DISORDER
     Route: 048
     Dates: start: 2008
  4. HUMIRA [Suspect]
     Active Substance: ADALIMUMAB
     Indication: RHEUMATOID ARTHRITIS
     Route: 058
     Dates: start: 2006
  5. EXELON [Concomitant]
     Active Substance: RIVASTIGMINE TARTRATE
     Indication: PROPHYLAXIS
  6. ANTI-INFLAMMATORY [Concomitant]
     Active Substance: UNSPECIFIED INGREDIENT
     Indication: RHEUMATOID ARTHRITIS
     Route: 048
     Dates: start: 2004

REACTIONS (19)
  - Respiratory arrest [Fatal]
  - Blood disorder [Unknown]
  - Listless [Unknown]
  - Cerebrovascular accident [Unknown]
  - Nervous system disorder [Not Recovered/Not Resolved]
  - Cerebral atrophy [Unknown]
  - Depression [Unknown]
  - Fall [Unknown]
  - Pneumonia [Recovered/Resolved]
  - Spinal fracture [Recovered/Resolved]
  - Neuropathy peripheral [Not Recovered/Not Resolved]
  - Gastric disorder [Unknown]
  - Seizure [Not Recovered/Not Resolved]
  - Speech disorder [Unknown]
  - Cerebrovascular accident [Not Recovered/Not Resolved]
  - Dysphagia [Unknown]
  - Dysphemia [Unknown]
  - Hypertension [Not Recovered/Not Resolved]
  - Tremor [Not Recovered/Not Resolved]

NARRATIVE: CASE EVENT DATE: 2007
